FAERS Safety Report 16966041 (Version 1)
Quarter: 2019Q4

REPORT INFORMATION
  Report Type: Spontaneous
  Country: US (occurrence: US)
  Receive Date: 20190910
  Receipt Date: 20190910
  Transmission Date: 20200122
  Serious: No
  Sender: FDA-Public Use
  Company Number: None

PATIENT
  Age: 72 Year
  Sex: Female

DRUGS (2)
  1. COSENTYX [Concomitant]
     Active Substance: SECUKINUMAB
  2. FORTEO [Suspect]
     Active Substance: TERIPARATIDE
     Route: 058
     Dates: start: 20190812

REACTIONS (4)
  - Rheumatoid arthritis [None]
  - Wrong technique in product usage process [None]
  - Condition aggravated [None]
  - Unevaluable event [None]

NARRATIVE: CASE EVENT DATE: 20190910
